FAERS Safety Report 4443201-9 (Version None)
Quarter: 2004Q3

REPORT INFORMATION
  Report Type: 
  Country: None (occurrence: None)
  Receive Date: 20040903
  Receipt Date: 20040630
  Transmission Date: 20050211
  Serious: Yes (Other)
  Sender: FDA-Public Use
  Company Number: 2004UW13608

PATIENT
  Age: 63 Year
  Sex: Female
  Weight: 136.0791 kg

DRUGS (10)
  1. CRESTOR [Suspect]
     Indication: BLOOD CHOLESTEROL INCREASED
     Dosage: 10 MG PO
     Route: 048
     Dates: end: 20040501
  2. KLOR-CON [Concomitant]
  3. ATACAND [Concomitant]
  4. ASPIRIN [Concomitant]
  5. IBUPROFEN [Concomitant]
  6. GLIPIZIDE [Concomitant]
  7. FUROSEMIDE [Concomitant]
  8. DITROPAN [Concomitant]
  9. ALPRAZOLAM [Concomitant]
  10. CLONIDINE HCL [Concomitant]

REACTIONS (2)
  - ABASIA [None]
  - MONOPLEGIA [None]
